FAERS Safety Report 9365770 (Version 2)
Quarter: 2013Q4

REPORT INFORMATION
  Report Type: Spontaneous
  Country: JP (occurrence: JP)
  Receive Date: 20130625
  Receipt Date: 20131118
  Transmission Date: 20140711
  Serious: Yes (Hospitalization)
  Sender: FDA-Public Use
  Company Number: JP-ROCHE-1239746

PATIENT
  Age: 42 Year
  Sex: Female
  Weight: 80 kg

DRUGS (13)
  1. ACTEMRA [Suspect]
     Indication: RHEUMATOID ARTHRITIS
     Route: 041
     Dates: start: 20130314, end: 20130411
  2. ACTEMRA [Suspect]
     Indication: RHEUMATOID ARTHRITIS
     Route: 041
     Dates: start: 20130611
  3. PREDNISOLONE [Suspect]
     Indication: RHEUMATOID ARTHRITIS
     Route: 065
     Dates: start: 20081003, end: 20081118
  4. PREDNISOLONE [Suspect]
     Route: 065
     Dates: start: 20081119, end: 20090128
  5. PREDNISOLONE [Suspect]
     Route: 065
     Dates: start: 20090129, end: 20090225
  6. PREDNISOLONE [Suspect]
     Route: 065
     Dates: start: 20090226, end: 20090422
  7. PREDNISOLONE [Suspect]
     Route: 065
     Dates: start: 20090423, end: 20091209
  8. PREDNISOLONE [Suspect]
     Route: 065
     Dates: start: 20091210, end: 20100203
  9. PREDNISOLONE [Suspect]
     Route: 048
     Dates: start: 20130411
  10. RHEUMATREX [Suspect]
     Indication: RHEUMATOID ARTHRITIS
     Route: 065
     Dates: start: 20081003
  11. FOLIAMIN [Concomitant]
     Indication: PROPHYLAXIS
     Route: 048
     Dates: start: 20081003
  12. GASMOTIN [Concomitant]
     Route: 048
     Dates: start: 20080926
  13. LIPITOR [Concomitant]
     Indication: DYSLIPIDAEMIA
     Route: 048
     Dates: start: 20090423

REACTIONS (1)
  - Enteritis infectious [Recovered/Resolved]
